FAERS Safety Report 6583395-2 (Version None)
Quarter: 2010Q1

REPORT INFORMATION
  Report Type: 
  Country: None (occurrence: None)
  Receive Date: 20100212
  Receipt Date: 20100212
  Transmission Date: 20100710
  Serious: Yes (Life-Threatening)
  Sender: FDA-Public Use
  Company Number: None

PATIENT
  Age: 73 Year
  Sex: Male
  Weight: 113 kg

DRUGS (1)
  1. AMPICILLIN AND SULBACTAM [Suspect]
     Indication: ABSCESS
     Dosage: 3 GM QID IV
     Route: 042
     Dates: start: 20100119, end: 20100120

REACTIONS (9)
  - ANGIOEDEMA [None]
  - CHILLS [None]
  - COGNITIVE DISORDER [None]
  - CONFUSIONAL STATE [None]
  - LETHARGY [None]
  - OROPHARYNGEAL SWELLING [None]
  - RESPIRATORY DEPRESSION [None]
  - RESPIRATORY DISTRESS [None]
  - SWELLING FACE [None]
